FAERS Safety Report 24934110 (Version 1)
Quarter: 2025Q1

REPORT INFORMATION
  Report Type: Report from Study
  Country: CA (occurrence: CA)
  Receive Date: 20250206
  Receipt Date: 20250206
  Transmission Date: 20250408
  Serious: Yes (Other)
  Sender: EXELIXIS
  Company Number: CA-IPSEN Group, Research and Development-2024-11535

PATIENT
  Sex: Male

DRUGS (7)
  1. CABOMETYX [Suspect]
     Active Substance: CABOZANTINIB S-MALATE
     Indication: Renal cell carcinoma
     Dosage: 40 MG, QD
     Route: 048
     Dates: start: 20221115
  2. EDOXABAN [Concomitant]
     Active Substance: EDOXABAN
  3. NIFEDIPINE [Concomitant]
     Active Substance: NIFEDIPINE
  4. LYRICA [Concomitant]
     Active Substance: PREGABALIN
  5. TYLENOL [Concomitant]
     Active Substance: ACETAMINOPHEN
  6. SYNTHROID [Concomitant]
     Active Substance: LEVOTHYROXINE SODIUM
  7. PANTOPRAZOLE SODIUM [Concomitant]
     Active Substance: PANTOPRAZOLE SODIUM

REACTIONS (1)
  - Malignant neoplasm progression [Unknown]
